FAERS Safety Report 5999976-0 (Version None)
Quarter: 2008Q4

REPORT INFORMATION
  Report Type: 
  Country: None (occurrence: None)
  Receive Date: 20081211
  Receipt Date: 20080711
  Transmission Date: 20090506
  Serious: No
  Sender: FDA-Public Use
  Company Number: US024079

PATIENT
  Age: 83 Year
  Sex: Male
  Weight: 35.8 kg

DRUGS (2)
  1. TREANDA [Suspect]
     Indication: CHRONIC LEUKAEMIA
     Dosage: 100 MG X 2 DAYS EVERY 4 WEEKS QD INTRAVENOUS
     Route: 042
     Dates: start: 20080519, end: 20080520
  2. TREANDA [Suspect]
     Indication: CHRONIC LEUKAEMIA
     Dosage: 100 MG X DAYS EVERY 4 WEEKS QD INTRAVENOUS
     Route: 042
     Dates: start: 20080616, end: 20080617

REACTIONS (2)
  - RASH GENERALISED [None]
  - SKIN EXFOLIATION [None]
